FAERS Safety Report 12636359 (Version 1)
Quarter: 2016Q3

REPORT INFORMATION
  Report Type: Other
  Country: JP (occurrence: JP)
  Receive Date: 20160809
  Receipt Date: 20160809
  Transmission Date: 20161109
  Serious: Yes (Hospitalization)
  Sender: FDA-Public Use
  Company Number: JP-DSJP-DSJ-2016-124187

PATIENT

DRUGS (12)
  1. VEEN D [Concomitant]
     Active Substance: CALCIUM CHLORIDE\DEXTROSE\POTASSIUM CHLORIDE\SODIUM ACETATE\SODIUM CHLORIDE
     Dosage: 200 ML, QD
     Route: 041
  2. BIO-THREE [Concomitant]
     Active Substance: HERBALS
     Dosage: 4 DF, BID
     Route: 050
  3. LASIX [Concomitant]
     Active Substance: FUROSEMIDE
     Dosage: 20 MG, QD
     Route: 050
  4. LANSOPRAZOLE. [Concomitant]
     Active Substance: LANSOPRAZOLE
     Dosage: 15 MG, QD
     Route: 050
  5. LIXIANA TABLETS 30MG [Suspect]
     Active Substance: EDOXABAN TOSILATE MONOHYDRATE
     Indication: THROMBOSIS PROPHYLAXIS
     Dosage: 30 MG, QD
     Route: 050
     Dates: end: 20160707
  6. CILOSTAZOL. [Suspect]
     Active Substance: CILOSTAZOL
     Indication: CEREBRAL INFARCTION
     Dosage: 100 MG, BID
     Route: 050
     Dates: end: 20160707
  7. THEO-DUR [Concomitant]
     Active Substance: THEOPHYLLINE ANHYDROUS
     Dosage: 0.8 G, BID
     Route: 050
  8. SODIUM CHLORIDE. [Concomitant]
     Active Substance: SODIUM CHLORIDE
     Dosage: 3 G, BID
     Route: 050
     Dates: start: 20160705
  9. LIXIANA TABLETS 30MG [Suspect]
     Active Substance: EDOXABAN TOSILATE MONOHYDRATE
     Indication: THROMBOSIS PROPHYLAXIS
  10. ALLOID G [Concomitant]
     Active Substance: SODIUM ALGINATE
     Dosage: 10 ML, BID
     Route: 050
  11. CILOSTAZOL. [Suspect]
     Active Substance: CILOSTAZOL
     Indication: EMBOLISM
  12. ENEVO [Concomitant]
     Dosage: 500 ML, BID
     Route: 065
     Dates: start: 20160705

REACTIONS (2)
  - Mouth haemorrhage [Recovered/Resolved]
  - Renal impairment [Unknown]

NARRATIVE: CASE EVENT DATE: 20160705
